FAERS Safety Report 8363795-0 (Version None)
Quarter: 2012Q2

REPORT INFORMATION
  Report Type: 
  Country: None (occurrence: None)
  Receive Date: 20120516
  Receipt Date: 20120510
  Transmission Date: 20120825
  Serious: Yes (Hospitalization, Other)
  Sender: FDA-Public Use
  Company Number: US-ABBOTT-12P-163-0903048-00

PATIENT
  Sex: Female
  Weight: 77.18 kg

DRUGS (5)
  1. HUMIRA [Suspect]
     Indication: RHEUMATOID ARTHRITIS
     Route: 058
     Dates: start: 20060101, end: 20120112
  2. METHOTREXATE [Concomitant]
     Indication: PRODUCT USED FOR UNKNOWN INDICATION
  3. NAPROXEN (ALEVE) [Concomitant]
     Indication: PRODUCT USED FOR UNKNOWN INDICATION
  4. HUMIRA [Suspect]
     Route: 058
     Dates: start: 20120203
  5. PREDNISONE [Concomitant]
     Indication: PRODUCT USED FOR UNKNOWN INDICATION
     Dosage: 1 IN 2 DAYS, WEANING OFF
     Dates: end: 20120101

REACTIONS (5)
  - OSTEOARTHRITIS [None]
  - TOOTH FRACTURE [None]
  - ARTHRALGIA [None]
  - TOOTH INFECTION [None]
  - URINARY TRACT INFECTION [None]
